FAERS Safety Report 4868372-1 (Version None)
Quarter: 2005Q4

REPORT INFORMATION
  Report Type: 
  Country: None (occurrence: None)
  Receive Date: 20051229
  Receipt Date: 20051123
  Transmission Date: 20060501
  Serious: Yes (Hospitalization, Disabling, Other)
  Sender: FDA-Public Use
  Company Number: US-GLAXOSMITHKLINE-A0583437A

PATIENT
  Age: 65 Year
  Sex: Female
  Weight: 63.6 kg

DRUGS (2)
  1. REQUIP [Suspect]
     Indication: RESTLESS LEGS SYNDROME
     Dosage: .25MG AT NIGHT
     Route: 048
     Dates: start: 20050808, end: 20050801
  2. ALLERGY MEDICATION [Concomitant]

REACTIONS (3)
  - ARRHYTHMIA [None]
  - ORTHOSTATIC HYPOTENSION [None]
  - SYNCOPE [None]
